FAERS Safety Report 7961219-6 (Version None)
Quarter: 2011Q4

REPORT INFORMATION
  Report Type: 
  Country: None (occurrence: None)
  Receive Date: 20111202
  Receipt Date: 20111128
  Transmission Date: 20120403
  Serious: Yes (Death)
  Sender: FDA-Public Use
  Company Number: ADR-2011-11627

PATIENT
  Age: 40 Year
  Sex: Female

DRUGS (4)
  1. BACLOFEN [Suspect]
     Indication: CANCER PAIN
     Dosage: 329.73 MCG/DAY,INTRATH
  2. BUPIVACAINE HCL [Concomitant]
  3. DILAUDID [Concomitant]
  4. CLONIDINE [Concomitant]

REACTIONS (1)
  - BREAST CANCER METASTATIC [None]
